FAERS Safety Report 9005629 (Version 2)
Quarter: 2013Q1

REPORT INFORMATION
  Report Type: Spontaneous
  Country: US (occurrence: US)
  Receive Date: 20130109
  Receipt Date: 20130115
  Transmission Date: 20140127
  Serious: Yes (Death)
  Sender: FDA-Public Use
  Company Number: US-PFIZER INC-2013005738

PATIENT
  Age: 29 Year
  Sex: Male

DRUGS (5)
  1. ALPRAZOLAM [Suspect]
     Dosage: UNK
  2. ZOLPIDEM TARTRATE [Suspect]
     Dosage: UNK
  3. HYDROMORPHONE [Suspect]
     Dosage: UNK
  4. TRAZODONE [Suspect]
     Dosage: UNK
  5. MIRTAZAPINE [Suspect]
     Dosage: UNK

REACTIONS (3)
  - Death [Fatal]
  - Cardiac arrest [Fatal]
  - Respiratory arrest [Fatal]
